FAERS Safety Report 26186802 (Version 1)
Quarter: 2025Q4

REPORT INFORMATION
  Report Type: Spontaneous
  Country: SG (occurrence: SG)
  Receive Date: 20251222
  Receipt Date: 20251222
  Transmission Date: 20260117
  Serious: Yes (Hospitalization)
  Sender: SANDOZ
  Company Number: SG-002147023-NVSC2024SG082027

PATIENT
  Age: 38 Year
  Sex: Female
  Weight: 106.5 kg

DRUGS (49)
  1. FLUDARABINE [Suspect]
     Active Substance: FLUDARABINE PHOSPHATE
     Indication: Follicular lymphoma
     Dosage: 25 MG/M2
  2. CYCLOPHOSPHAMIDE [Suspect]
     Active Substance: CYCLOPHOSPHAMIDE
     Indication: Follicular lymphoma
     Dosage: UNK
     Dates: start: 20200413, end: 20200728
  3. CYCLOPHOSPHAMIDE [Suspect]
     Active Substance: CYCLOPHOSPHAMIDE
     Indication: Neoplasm malignant
     Dosage: 250 MG/M2
  4. OMEPRAZOLE [Concomitant]
     Active Substance: OMEPRAZOLE
     Indication: Gastrointestinal disorder prophylaxis
     Dosage: UNK
  5. ACETAMINOPHEN [Concomitant]
     Active Substance: ACETAMINOPHEN
     Indication: Pain prophylaxis
     Dosage: UNK
  6. ACETAMINOPHEN [Concomitant]
     Active Substance: ACETAMINOPHEN
     Indication: Prophylaxis
     Dosage: UNK
     Dates: start: 20240306, end: 20240601
  7. ACETAMINOPHEN [Concomitant]
     Active Substance: ACETAMINOPHEN
     Indication: Pain
     Dosage: UNK
     Dates: start: 20240703, end: 20240703
  8. EMPAGLIFLOZIN [Concomitant]
     Active Substance: EMPAGLIFLOZIN
     Indication: Diabetes mellitus
     Dosage: UNK
     Dates: start: 20240201, end: 20240422
  9. EMPAGLIFLOZIN [Concomitant]
     Active Substance: EMPAGLIFLOZIN
     Dosage: UNK
  10. SENNA [Concomitant]
     Active Substance: SENNOSIDES
     Indication: Constipation prophylaxis
     Dosage: UNK
  11. ACYCLOVIR [Concomitant]
     Active Substance: ACYCLOVIR
     Indication: Antiviral prophylaxis
     Dosage: UNK
  12. OralSeven [Concomitant]
     Indication: Prophylaxis
     Dosage: MOISTURISING MOUTHWASH
     Dates: start: 20240301, end: 20240517
  13. POTASSIUM CHLORIDE [Concomitant]
     Active Substance: POTASSIUM CHLORIDE
     Indication: Hypokalaemia
     Dosage: (PREMIXED IN WFI) 10MMOL/100ML
     Dates: start: 20240417, end: 20240417
  14. POTASSIUM CHLORIDE [Concomitant]
     Active Substance: POTASSIUM CHLORIDE
     Dosage: SR TABLET
     Dates: start: 20240417, end: 20240417
  15. POTASSIUM CHLORIDE [Concomitant]
     Active Substance: POTASSIUM CHLORIDE
     Dosage: SR TABLET
     Dates: start: 20240716, end: 20240717
  16. POTASSIUM CHLORIDE [Concomitant]
     Active Substance: POTASSIUM CHLORIDE
     Dosage: 500MG/5ML MIXTURE
     Dates: start: 20240716, end: 20240716
  17. POTASSIUM CHLORIDE [Concomitant]
     Active Substance: POTASSIUM CHLORIDE
     Dosage: UNK
     Dates: start: 20240703, end: 20240705
  18. POTASSIUM CHLORIDE [Concomitant]
     Active Substance: POTASSIUM CHLORIDE
     Dosage: 600MG SR TABLET
     Dates: start: 20240510, end: 20240521
  19. POTASSIUM CHLORIDE [Concomitant]
     Active Substance: POTASSIUM CHLORIDE
     Dosage: 600MG SR TABLET
     Dates: start: 20240507, end: 20240509
  20. POTASSIUM CHLORIDE [Concomitant]
     Active Substance: POTASSIUM CHLORIDE
     Dosage: 10MMOL/100ML INFUSION
     Dates: start: 20240507, end: 20240507
  21. COTRIMOXAZOLE [Concomitant]
     Active Substance: SULFAMETHOXAZOLE\TRIMETHOPRIM
     Indication: Infection prophylaxis
     Dosage: TRIMETHOPRIM 80MG, SULFAMETHOXAZOLE
     Dates: start: 20240301, end: 20240708
  22. COTRIMOXAZOLE [Concomitant]
     Active Substance: SULFAMETHOXAZOLE\TRIMETHOPRIM
     Dosage: 80 MG
     Dates: start: 20240709, end: 20240715
  23. COTRIMOXAZOLE [Concomitant]
     Active Substance: SULFAMETHOXAZOLE\TRIMETHOPRIM
     Dosage: 80 MG
  24. AMOXICILLIN\CLAVULANATE POTASSIUM [Concomitant]
     Active Substance: AMOXICILLIN\CLAVULANATE POTASSIUM
     Indication: Upper respiratory tract infection
     Dosage: AMOXICILLIN 500MG, CLAVULANIC ACID 125MG
     Dates: start: 20240403, end: 20240410
  25. AMOXICILLIN\CLAVULANATE POTASSIUM [Concomitant]
     Active Substance: AMOXICILLIN\CLAVULANATE POTASSIUM
     Indication: Infection prophylaxis
     Dosage: UNK
     Dates: start: 20240705, end: 20240710
  26. AMOXICILLIN\CLAVULANATE POTASSIUM [Concomitant]
     Active Substance: AMOXICILLIN\CLAVULANATE POTASSIUM
     Indication: Pyrexia
     Dosage: UNK
     Dates: start: 20240703, end: 20240704
  27. AMOXICILLIN\CLAVULANATE POTASSIUM [Concomitant]
     Active Substance: AMOXICILLIN\CLAVULANATE POTASSIUM
     Dosage: UNK
     Dates: start: 20240705, end: 20240710
  28. CHLORPHENIRAMINE MALEATE [Concomitant]
     Active Substance: CHLORPHENIRAMINE MALEATE
     Indication: Upper respiratory tract infection
     Dosage: UNK
     Dates: start: 20240403, end: 20240416
  29. BENZYDAMINE [Concomitant]
     Active Substance: BENZYDAMINE
     Indication: Upper respiratory tract infection
     Dosage: UNK
     Dates: start: 20240403, end: 20240416
  30. BENZYDAMINE [Concomitant]
     Active Substance: BENZYDAMINE
     Indication: Pain prophylaxis
     Dosage: UNK
     Dates: start: 20240422, end: 20240429
  31. FILGRASTIM [Concomitant]
     Active Substance: FILGRASTIM
     Indication: Neutrophil count decreased
     Dosage: 300MCG/0.5ML, PREFILLED SYRINGE
     Dates: start: 20240418, end: 20240418
  32. GLUCERNA [Concomitant]
     Active Substance: AMINO ACIDS\DEXTROSE\ELECTROLYTES NOS\SOYBEAN OIL\VITAMINS
     Indication: Nutritional supplementation
     Dosage: UNK
     Dates: start: 20240418, end: 20240429
  33. IRON [Concomitant]
     Active Substance: IRON
     Indication: Mineral supplementation
     Dosage: UNK
  34. HEPARIN SODIUM [Concomitant]
     Active Substance: HEPARIN SODIUM
     Indication: Catheter management
     Dosage: UNK
     Dates: start: 20240422, end: 20240422
  35. MAGNESIUM [Concomitant]
     Active Substance: MAGNESIUM
     Indication: Hypomagnesaemia
     Dosage: UNK
     Dates: start: 20240507, end: 20240521
  36. TRANEXAMIC ACID [Concomitant]
     Active Substance: TRANEXAMIC ACID
     Indication: Prophylaxis
     Dosage: UNK
     Dates: start: 20240626, end: 20240704
  37. BETAMETHASONE [Concomitant]
     Active Substance: BETAMETHASONE
     Indication: Dermatitis contact
     Dosage: UNK
     Dates: start: 20240701, end: 20240708
  38. FEXOFENADINE HYDROCHLORIDE [Concomitant]
     Active Substance: FEXOFENADINE HYDROCHLORIDE
     Indication: Prophylaxis
     Dosage: UNK
     Dates: start: 20240701, end: 20240708
  39. SODIUM LACTATE [Concomitant]
     Active Substance: SODIUM LACTATE
     Indication: Supplementation therapy
     Dosage: UNK
     Dates: start: 20240716, end: 20240716
  40. SIMVASTATIN [Concomitant]
     Active Substance: SIMVASTATIN
     Indication: Hyperlipidaemia
     Dosage: UNK
  41. METFORMIN HYDROCHLORIDE [Concomitant]
     Active Substance: METFORMIN HYDROCHLORIDE
     Indication: Diabetes mellitus
     Dosage: UNK
  42. VICTOZA [Concomitant]
     Active Substance: LIRAGLUTIDE
     Indication: Diabetes mellitus
     Dosage: PREFILLED PEN
  43. LACTULOSE [Concomitant]
     Active Substance: LACTULOSE
     Indication: Constipation prophylaxis
     Dosage: UNK
     Dates: start: 20231005, end: 20240601
  44. INSULIN ASPART [Concomitant]
     Active Substance: INSULIN ASPART
     Indication: Diabetes mellitus
     Dosage: FLEXPEN
  45. Diben [Concomitant]
     Indication: Prophylaxis
     Dosage: UNK
     Dates: start: 20240322, end: 20240517
  46. Boost isocal [Concomitant]
     Indication: Prophylaxis
     Dosage: UNK
     Dates: start: 20240323, end: 20240518
  47. DEXTROSE [Concomitant]
     Active Substance: DEXTROSE MONOHYDRATE
     Indication: Diabetes mellitus
     Dosage: UNK
     Dates: start: 20240421, end: 20240421
  48. AMOXICILLIN\CLAVULANIC ACID [Concomitant]
     Active Substance: AMOXICILLIN\CLAVULANIC ACID
     Indication: Pyrexia
     Dosage: UNK
     Dates: start: 20240703, end: 20240704
  49. AMOXICILLIN\CLAVULANIC ACID [Concomitant]
     Active Substance: AMOXICILLIN\CLAVULANIC ACID
     Indication: Infection prophylaxis
     Dosage: UNK
     Dates: start: 20240705, end: 20240710

REACTIONS (2)
  - COVID-19 pneumonia [Recovered/Resolved]
  - Upper respiratory tract infection [Recovering/Resolving]

NARRATIVE: CASE EVENT DATE: 20240417
